FAERS Safety Report 8581764-2 (Version None)
Quarter: 2012Q3

REPORT INFORMATION
  Report Type: 
  Country: None (occurrence: None)
  Receive Date: 20120801
  Receipt Date: 20120801
  Transmission Date: 20120928
  Serious: Yes (Death, Hospitalization)
  Sender: FDA-Public Use
  Company Number: None

PATIENT
  Age: 50 Year
  Sex: Male

DRUGS (2)
  1. RANEXA [Suspect]
     Indication: ANGINA PECTORIS
     Dosage: 500MG DAILY PO
     Route: 048
     Dates: start: 20120508, end: 20120514
  2. METHADONE HYDROCHLORIDE [Suspect]
     Indication: PAIN
     Dosage: 20MG 4XDAY PO
     Route: 048

REACTIONS (9)
  - TACHYCARDIA [None]
  - ELECTROCARDIOGRAM QT PROLONGED [None]
  - DRUG INTERACTION [None]
  - HYPERKALAEMIA [None]
  - CORONARY ARTERY DISEASE [None]
  - ABASIA [None]
  - ASTHENIA [None]
  - SEDATION [None]
  - MYOSITIS [None]
